FAERS Safety Report 7184141-4 (Version None)
Quarter: 2010Q4

REPORT INFORMATION
  Report Type: 
  Country: None (occurrence: None)
  Receive Date: 20101222
  Receipt Date: 20101215
  Transmission Date: 20110411
  Serious: Yes (Death, Hospitalization, Other)
  Sender: FDA-Public Use
  Company Number: US-CELGENEUS-163-21880-09072399

PATIENT
  Age: 60 Year
  Sex: Female
  Weight: 94.5 kg

DRUGS (5)
  1. REVLIMID [Suspect]
     Indication: MULTIPLE MYELOMA
     Route: 048
     Dates: start: 20090429, end: 20090720
  2. REVLIMID [Suspect]
     Route: 048
     Dates: start: 20060223
  3. AVELOX [Concomitant]
     Route: 065
  4. NEXIUM [Concomitant]
     Route: 065
  5. ETOPOSIDE [Concomitant]
     Indication: LYMPHOHISTIOCYTOSIS
     Route: 065

REACTIONS (8)
  - CARDIO-RESPIRATORY ARREST [None]
  - CHOLESTASIS [None]
  - DEATH [None]
  - EPSTEIN-BARR VIRUS INFECTION [None]
  - LYMPHOHISTIOCYTOSIS [None]
  - RENAL FAILURE [None]
  - SEPSIS [None]
  - SUBARACHNOID HAEMORRHAGE [None]
